FAERS Safety Report 20010647 (Version 2)
Quarter: 2021Q4

REPORT INFORMATION
  Report Type: Spontaneous
  Country: NL (occurrence: NL)
  Receive Date: 20211028
  Receipt Date: 20211102
  Transmission Date: 20220303
  Serious: Yes (Other)
  Sender: FDA-Public Use
  Company Number: NL-TEVA-2021-NL-1969169

PATIENT
  Age: 27 Year
  Sex: Male

DRUGS (4)
  1. SOTALOL [Suspect]
     Active Substance: SOTALOL
     Indication: Atrial flutter
     Dosage: 160 MILLIGRAM DAILY;
     Route: 065
  2. SOTALOL [Suspect]
     Active Substance: SOTALOL
     Dosage: PILL IN THE POCKET
     Route: 065
  3. IBUTILIDE [Suspect]
     Active Substance: IBUTILIDE
     Indication: Atrial flutter
     Route: 042
  4. MAGNESIUM [Concomitant]
     Active Substance: MAGNESIUM
     Indication: Atrial flutter
     Route: 042

REACTIONS (1)
  - Long QT syndrome [Recovered/Resolved]
